FAERS Safety Report 8326105-0 (Version None)
Quarter: 2012Q2

REPORT INFORMATION
  Report Type: 
  Country: None (occurrence: None)
  Receive Date: 20120501
  Receipt Date: 20120425
  Transmission Date: 20120825
  Serious: Yes (Hospitalization)
  Sender: FDA-Public Use
  Company Number: US-CELGENEUS-163-20785-12040921

PATIENT
  Sex: Female

DRUGS (10)
  1. CALCIUM + D [Concomitant]
     Route: 065
  2. ZOLOFT [Concomitant]
     Route: 065
  3. NAMENDA [Concomitant]
     Route: 065
  4. PERI-COLACE [Concomitant]
     Route: 065
  5. THALOMID [Suspect]
     Dosage: 50 MILLIGRAM
     Route: 048
     Dates: start: 20120326
  6. IBUPROFEN (ADVIL) [Concomitant]
     Route: 065
  7. EVISTA [Concomitant]
     Route: 065
  8. LEVOXYL [Concomitant]
     Route: 065
  9. SYNTHROID [Concomitant]
     Route: 065
  10. ECOTRIN LOW STRENGTH [Concomitant]
     Route: 065

REACTIONS (3)
  - ASTHENIA [None]
  - SYNCOPE [None]
  - BALANCE DISORDER [None]
